FAERS Safety Report 4781729-2 (Version None)
Quarter: 2005Q3

REPORT INFORMATION
  Report Type: 
  Country: None (occurrence: None)
  Receive Date: 20050927
  Receipt Date: 20050914
  Transmission Date: 20060218
  Serious: Yes (Death)
  Sender: FDA-Public Use
  Company Number: 2005128702

PATIENT
  Age: 73 Year
  Sex: 0

DRUGS (3)
  1. DEXTROMETHORPHAN HYDROBROMIDE [Suspect]
  2. SODIUM HYPOCHLORITE (SODIUM HYPOCHLORITE) [Suspect]
  3. ACID PREPARATIONS (ACID PREPARATIONS) [Suspect]

REACTIONS (2)
  - DEATH [None]
  - OVERDOSE [None]
